FAERS Safety Report 6406104-6 (Version None)
Quarter: 2009Q4

REPORT INFORMATION
  Report Type: 
  Country: None (occurrence: None)
  Receive Date: 20091019
  Receipt Date: 20091008
  Transmission Date: 20100525
  Serious: Yes (Hospitalization)
  Sender: FDA-Public Use
  Company Number: US-JNJFOC-20090604024

PATIENT
  Sex: Female
  Weight: 120.66 kg

DRUGS (3)
  1. REMICADE [Suspect]
     Route: 042
     Dates: start: 20090326, end: 20090616
  2. REMICADE [Suspect]
     Route: 042
     Dates: start: 20090326, end: 20090616
  3. REMICADE [Suspect]
     Indication: PSORIATIC ARTHROPATHY
     Route: 042
     Dates: start: 20090326, end: 20090616

REACTIONS (2)
  - ATRIAL FIBRILLATION [None]
  - MALAISE [None]
